FAERS Safety Report 13603278 (Version 1)
Quarter: 2017Q2

REPORT INFORMATION
  Report Type: Spontaneous
  Country: IN (occurrence: IN)
  Receive Date: 20170601
  Receipt Date: 20170601
  Transmission Date: 20170830
  Serious: Yes (Other)
  Sender: FDA-Public Use
  Company Number: IN-ALLERGAN-1648519

PATIENT
  Age: 11 Year
  Sex: Female

DRUGS (15)
  1. FENTANYL. [Suspect]
     Active Substance: FENTANYL
     Dosage: 50 ?G, Q1H
     Route: 062
  2. DICLOFENAC [Concomitant]
     Active Substance: DICLOFENAC
     Indication: ANALGESIC THERAPY
     Dosage: 75 MG, DAILY
     Route: 048
  3. DICYCLOVERINE [Concomitant]
     Active Substance: DICYCLOMINE HYDROCHLORIDE
     Indication: ABDOMINAL PAIN
     Dosage: UNKNOWN
     Route: 048
  4. FLUPIRTINE [Concomitant]
     Active Substance: FLUPIRTINE
     Indication: ANALGESIC THERAPY
     Dosage: UNKNOWN
     Route: 048
  5. DOMPERIDONE [Concomitant]
     Active Substance: DOMPERIDONE
     Indication: PRODUCT USED FOR UNKNOWN INDICATION
     Route: 048
  6. MORPHINE SULFATE UNK [Suspect]
     Active Substance: MORPHINE SULFATE
     Dosage: 60 MG, DAILY
     Route: 048
  7. PHENYTOIN. [Concomitant]
     Active Substance: PHENYTOIN
     Indication: PRODUCT USED FOR UNKNOWN INDICATION
     Dosage: 100 MG, BID
  8. FENTANYL. [Suspect]
     Active Substance: FENTANYL
     Dosage: 25 ?G, Q1HR
     Route: 062
  9. HYOSCINE BUTYLBROMIDE [Concomitant]
     Active Substance: BUTYLSCOPOLAMINE
     Indication: ABDOMINAL PAIN
     Dosage: UNKNOWN
     Route: 051
  10. LEVETIRACETAM. [Concomitant]
     Active Substance: LEVETIRACETAM
     Indication: PRODUCT USED FOR UNKNOWN INDICATION
     Dosage: 500 MG, BID
     Route: 065
  11. MORPHINE SULFATE UNK [Suspect]
     Active Substance: MORPHINE SULFATE
     Indication: ANALGESIC THERAPY
     Dosage: 30 MG, QD
     Route: 048
  12. MORPHINE SULFATE UNK [Suspect]
     Active Substance: MORPHINE SULFATE
     Dosage: 180 MG, DAILY
     Route: 048
  13. FENTANYL. [Suspect]
     Active Substance: FENTANYL
     Indication: ANALGESIC THERAPY
     Dosage: 75 ?G, Q1H
     Route: 062
  14. PARACETAMOL [Concomitant]
     Active Substance: ACETAMINOPHEN
     Indication: PRODUCT USED FOR UNKNOWN INDICATION
     Route: 048
  15. PARAFFIN [Concomitant]
     Active Substance: PARAFFIN
     Indication: PRODUCT USED FOR UNKNOWN INDICATION
     Route: 048

REACTIONS (2)
  - Neurotoxicity [Recovering/Resolving]
  - Drug tolerance [Unknown]
